FAERS Safety Report 9952320 (Version 1)
Quarter: 2014Q1

REPORT INFORMATION
  Report Type: Report from Study
  Country: US (occurrence: US)
  Receive Date: 20140304
  Receipt Date: 20140304
  Transmission Date: 20141002
  Serious: No
  Sender: FDA-Public Use
  Company Number: US-ABBVIE-13P-163-1079493-00

PATIENT
  Age: 50 Year
  Sex: Female

DRUGS (13)
  1. HUMIRA [Suspect]
     Indication: ANKYLOSING SPONDYLITIS
     Dates: start: 2010
  2. HUMIRA [Suspect]
     Dates: start: 201304
  3. ATENOLOL [Concomitant]
     Indication: HEART RATE IRREGULAR
     Dosage: ONCE DAILY
  4. AMBIEN [Concomitant]
     Indication: INSOMNIA
     Dosage: AT BEDTIME
  5. BUSPAR [Concomitant]
     Indication: ANXIETY
     Dosage: AT BEDTIME
  6. FLEXERIL [Concomitant]
     Indication: PAIN
     Dosage: AT BEDTIME
  7. MOBIC [Concomitant]
     Indication: PAIN
     Dosage: TWICE DAILY
  8. EFFEXOR [Concomitant]
     Indication: DEPRESSION
     Route: 048
  9. PROTONIX [Concomitant]
     Indication: GASTROOESOPHAGEAL REFLUX DISEASE
     Dosage: 40 MG DAILY
     Route: 048
  10. ZANTAC [Concomitant]
     Indication: GASTROOESOPHAGEAL REFLUX DISEASE
     Dosage: 300 MG AT BEDTIME
     Route: 048
  11. VIVELLE DOT [Concomitant]
     Indication: HORMONE REPLACEMENT THERAPY
  12. VICODIN [Concomitant]
     Indication: PAIN
  13. PLAQUENIL [Concomitant]
     Indication: ARTHRITIS

REACTIONS (3)
  - Red blood cell sedimentation rate increased [Not Recovered/Not Resolved]
  - Drug ineffective [Not Recovered/Not Resolved]
  - Ankylosing spondylitis [Not Recovered/Not Resolved]
